FAERS Safety Report 6354557-4 (Version None)
Quarter: 2009Q3

REPORT INFORMATION
  Report Type: 
  Country: None (occurrence: None)
  Receive Date: 20090909
  Receipt Date: 20090831
  Transmission Date: 20100115
  Serious: Yes (Death)
  Sender: FDA-Public Use
  Company Number: CHPA2009US18096

PATIENT
  Sex: Male

DRUGS (1)
  1. NICOTINE [Suspect]
     Indication: SMOKING CESSATION THERAPY
     Dosage: UNK, TRANSDERMAL
     Route: 062

REACTIONS (3)
  - CARDIAC DISORDER [None]
  - CONCOMITANT DISEASE PROGRESSION [None]
  - DRUG INEFFECTIVE [None]
